FAERS Safety Report 13705645 (Version 2)
Quarter: 2017Q3

REPORT INFORMATION
  Report Type: Spontaneous
  Country: FR (occurrence: FR)
  Receive Date: 20170630
  Receipt Date: 20170706
  Transmission Date: 20171127
  Serious: Yes (Other)
  Sender: FDA-Public Use
  Company Number: FR-TEVA-781382ROM

PATIENT
  Age: 21 Year
  Sex: Male
  Weight: 89 kg

DRUGS (6)
  1. PREGABALIN. [Interacting]
     Active Substance: PREGABALIN
     Dosage: 200 MG X 2
     Route: 048
  2. FLUCONAZOLE. [Interacting]
     Active Substance: FLUCONAZOLE
     Indication: URINARY TRACT INFECTION FUNGAL
     Dosage: 800 MG, AT 6 PM; FOLLOWED BY 400 MG DAILY
     Route: 042
     Dates: start: 20160422
  3. DIAZEPAM. [Suspect]
     Active Substance: DIAZEPAM
     Dosage: 6 MG
     Route: 048
  4. OXYCODONE [Interacting]
     Active Substance: OXYCODONE
     Dosage: IMMEDIATE RELEASE
     Route: 065
     Dates: start: 20160412
  5. FLUCONAZOLE. [Interacting]
     Active Substance: FLUCONAZOLE
     Indication: URINARY TRACT INFECTION FUNGAL
     Dosage: 400 MG DAILY, FIRST DOSE ON 23 APR 2016, AT 8 AM
     Route: 050
     Dates: start: 20160422
  6. OXYCODONE [Interacting]
     Active Substance: OXYCODONE
     Dosage: SLOW RELEASE
     Route: 065
     Dates: start: 20160412

REACTIONS (2)
  - Respiratory depression [Recovering/Resolving]
  - Drug interaction [Recovering/Resolving]

NARRATIVE: CASE EVENT DATE: 20160423
